FAERS Safety Report 24544125 (Version 1)
Quarter: 2024Q4

REPORT INFORMATION
  Report Type: Report from Study
  Country: CA (occurrence: None)
  Receive Date: 20241024
  Receipt Date: 20241024
  Transmission Date: 20250115
  Serious: Yes (Other)
  Sender: ORION
  Company Number: CA-AMGEN-CANSL2024205988

PATIENT
  Age: 44 Year
  Sex: Female

DRUGS (5)
  1. METHOTREXATE [Suspect]
     Active Substance: METHOTREXATE
     Indication: Rheumatoid arthritis
  2. ENBREL [Suspect]
     Active Substance: ETANERCEPT
     Indication: Rheumatoid arthritis
     Dates: start: 20120325
  3. ENBREL [Suspect]
     Active Substance: ETANERCEPT
  4. IBUPROFEN [Concomitant]
     Active Substance: IBUPROFEN
     Dosage: AS NEEDED INTO ONE MONTH
  5. FOLIC ACID [Concomitant]
     Active Substance: FOLIC ACID
     Dosage: 6 TIMES/WK

REACTIONS (1)
  - Rheumatoid arthritis [Recovering/Resolving]
